FAERS Safety Report 23694516 (Version 2)
Quarter: 2024Q2

REPORT INFORMATION
  Report Type: Spontaneous
  Country: US (occurrence: US)
  Receive Date: 20240401
  Receipt Date: 20240425
  Transmission Date: 20240715
  Serious: No
  Sender: FDA-Public Use
  Company Number: US-SA-SAC20240329000048

PATIENT
  Age: 43 Year
  Sex: Male
  Weight: 97.52 kg

DRUGS (1)
  1. DUPIXENT [Suspect]
     Active Substance: DUPILUMAB
     Indication: Dermatitis atopic
     Dosage: 300 MG, QOW
     Route: 058

REACTIONS (4)
  - Corneal scar [Recovering/Resolving]
  - Foreign body in eye [Recovering/Resolving]
  - Superficial injury of eye [Recovering/Resolving]
  - Corneal abrasion [Unknown]

NARRATIVE: CASE EVENT DATE: 20240302
